FAERS Safety Report 8155887-6 (Version None)
Quarter: 2012Q1

REPORT INFORMATION
  Report Type: 
  Country: None (occurrence: None)
  Receive Date: 20120215
  Receipt Date: 20120209
  Transmission Date: 20120608
  Serious: Yes (Life-Threatening, Other)
  Sender: FDA-Public Use
  Company Number: 2012SP004909

PATIENT
  Age: 52 Year
  Sex: Female

DRUGS (7)
  1. METOPROLOL [Concomitant]
  2. ESCITALOPRAM [Concomitant]
  3. PEG-INTRON [Suspect]
     Indication: HEPATITIS C
     Dosage: 100 MCG;QW;SC ; 100 MCG;QW;SC
     Route: 058
     Dates: start: 20110915, end: 20120125
  4. PEG-INTRON [Suspect]
     Indication: HEPATITIS C
     Dosage: 100 MCG;QW;SC ; 100 MCG;QW;SC
     Route: 058
     Dates: start: 20120130
  5. REBETOL [Suspect]
     Indication: HEPATITIS C
     Dosage: 1200 MG;QD
     Dates: start: 20110915
  6. BOCEPREVIR (SCH-503034) [Suspect]
     Indication: HEPATITIS C
     Dosage: 12 DF;QD
     Dates: start: 20111013
  7. IMOVANE [Concomitant]

REACTIONS (2)
  - LEUKOPENIA [None]
  - NEUTROPENIA [None]
